FAERS Safety Report 14738608 (Version 2)
Quarter: 2018Q2

REPORT INFORMATION
  Report Type: Spontaneous
  Country: US (occurrence: US)
  Receive Date: 20180409
  Receipt Date: 20180410
  Transmission Date: 20180711
  Serious: Yes (Hospitalization)
  Sender: FDA-Public Use
  Company Number: US-CELGENEUS-USA-20180401746

PATIENT
  Age: 60 Year
  Sex: Male

DRUGS (1)
  1. REVLIMID [Suspect]
     Active Substance: LENALIDOMIDE
     Indication: CENTRAL NERVOUS SYSTEM LYMPHOMA
     Dosage: 10 MILLIGRAM
     Route: 048
     Dates: start: 20180226, end: 20180325

REACTIONS (2)
  - Sinus bradycardia [Unknown]
  - Seizure [Unknown]

NARRATIVE: CASE EVENT DATE: 20180325
